FAERS Safety Report 15090077 (Version 1)
Quarter: 2018Q2

REPORT INFORMATION
  Report Type: Spontaneous
  Country: US (occurrence: US)
  Receive Date: 20180629
  Receipt Date: 20180629
  Transmission Date: 20180711
  Serious: Yes (Other)
  Sender: FDA-Public Use
  Company Number: US-BAYER-2018-112385

PATIENT
  Sex: Male

DRUGS (1)
  1. DR. SCHOLLS CLEAR AWAY WART REMOVER PLANTAR [Suspect]
     Active Substance: SALICYLIC ACID
     Indication: THERAPEUTIC SKIN CARE TOPICAL
     Dosage: UNK
     Route: 061

REACTIONS (1)
  - Application site necrosis [Unknown]
